FAERS Safety Report 5669002-1 (Version None)
Quarter: 2008Q1

REPORT INFORMATION
  Report Type: 
  Country: None (occurrence: None)
  Receive Date: 20080317
  Receipt Date: 20080306
  Transmission Date: 20080703
  Serious: Yes (Death)
  Sender: FDA-Public Use
  Company Number: IL-NOVOPROD-271110

PATIENT
  Age: 22 Year
  Sex: Female
  Weight: 74 kg

DRUGS (5)
  1. NOVOSEVEN [Suspect]
     Indication: HAEMORRHAGE
     Dosage: 19.2 UNK, UNK
     Dates: start: 20080107
  2. NOR-ADRENALIN [Concomitant]
     Dosage: 66 CC / HR (36 MG %)
  3. FRESH FROZEN PLASMA [Concomitant]
     Dosage: 24 UNK, UNK
     Dates: start: 20080107, end: 20080108
  4. BLOOD CELLS, PACKED HUMAN [Concomitant]
     Dosage: 9 UNK, UNK
     Dates: start: 20080107, end: 20080108
  5. PLATELETS [Concomitant]
     Dosage: 6 UNK, UNK
     Dates: start: 20080107, end: 20080108

REACTIONS (2)
  - ARTERIAL OCCLUSIVE DISEASE [None]
  - MULTI-ORGAN FAILURE [None]
